FAERS Safety Report 14683126 (Version 1)
Quarter: 2018Q1

REPORT INFORMATION
  Report Type: Report from Study
  Country: US (occurrence: US)
  Receive Date: 20180327
  Receipt Date: 20180327
  Transmission Date: 20180509
  Serious: No
  Sender: FDA-Public Use
  Company Number: US-ROCHE-2097090

PATIENT
  Age: 50 Year
  Sex: Female
  Weight: 88.08 kg

DRUGS (2)
  1. OCREVUS [Suspect]
     Active Substance: OCRELIZUMAB
     Indication: RELAPSING-REMITTING MULTIPLE SCLEROSIS
     Route: 042
     Dates: start: 20180213
  2. OCREVUS [Suspect]
     Active Substance: OCRELIZUMAB
     Route: 042
     Dates: start: 20180309

REACTIONS (11)
  - Headache [Not Recovered/Not Resolved]
  - Feeling hot [Not Recovered/Not Resolved]
  - Malaise [Not Recovered/Not Resolved]
  - Feeling hot [Unknown]
  - Feeling cold [Not Recovered/Not Resolved]
  - Sinusitis [Unknown]
  - Pain [Not Recovered/Not Resolved]
  - Headache [Unknown]
  - Pharyngeal oedema [Unknown]
  - Flushing [Unknown]
  - Pain [Unknown]

NARRATIVE: CASE EVENT DATE: 20180213
